FAERS Safety Report 6546513-8 (Version None)
Quarter: 2010Q1

REPORT INFORMATION
  Report Type: 
  Country: None (occurrence: None)
  Receive Date: 20100115
  Receipt Date: 20091228
  Transmission Date: 20100710
  Serious: No
  Sender: FDA-Public Use
  Company Number: 2009-00928

PATIENT
  Age: 63 Year
  Sex: Female
  Weight: 55.3388 kg

DRUGS (2)
  1. COLD REMEDY NASAL GEL [Suspect]
     Dosage: BID - 6 DAYS
     Dates: start: 20091207, end: 20091213
  2. NIACIN [Concomitant]

REACTIONS (1)
  - ANOSMIA [None]
